FAERS Safety Report 7037095-5 (Version None)
Quarter: 2010Q4

REPORT INFORMATION
  Report Type: 
  Country: None (occurrence: None)
  Receive Date: 20101011
  Receipt Date: 20100929
  Transmission Date: 20110411
  Serious: Yes (Other)
  Sender: FDA-Public Use
  Company Number: PHFR2010GB01534

PATIENT
  Sex: Male

DRUGS (1)
  1. CLOZARIL [Suspect]
     Indication: SCHIZOPHRENIA
     Dosage: UNK
     Route: 048
     Dates: start: 20090827

REACTIONS (5)
  - INTESTINAL RESECTION [None]
  - NAUSEA [None]
  - NEOPLASM MALIGNANT [None]
  - TUMOUR EXCISION [None]
  - VOMITING [None]
